FAERS Safety Report 9325727 (Version 1)
Quarter: 2013Q2

REPORT INFORMATION
  Report Type: Spontaneous
  Country: US (occurrence: US)
  Receive Date: 20130604
  Receipt Date: 20130604
  Transmission Date: 20140414
  Serious: No
  Sender: FDA-Public Use
  Company Number: US-009507513-1306USA000378

PATIENT
  Age: 42 Year
  Sex: Female
  Weight: 99.77 kg

DRUGS (1)
  1. NEXPLANON [Suspect]
     Indication: CONTRACEPTION
     Dosage: 1 ROD EVERY 3 YEARS
     Route: 059
     Dates: start: 20110331, end: 20130530

REACTIONS (4)
  - Retching [Unknown]
  - Vomiting [Unknown]
  - Sexual dysfunction [Unknown]
  - Malaise [Unknown]
